FAERS Safety Report 7483992-6 (Version None)
Quarter: 2011Q2

REPORT INFORMATION
  Report Type: 
  Country: None (occurrence: None)
  Receive Date: 20110517
  Receipt Date: 20110506
  Transmission Date: 20111010
  Serious: Yes (Other)
  Sender: FDA-Public Use
  Company Number: US-PFIZER INC-2009214624

PATIENT
  Sex: Female
  Weight: 54 kg

DRUGS (13)
  1. OGEN [Suspect]
     Indication: HORMONE REPLACEMENT THERAPY
     Dosage: 0.625 MG, UNK
     Route: 048
     Dates: start: 19950101, end: 19990101
  2. HYOSCYAMINE [Concomitant]
     Indication: ABDOMINAL PAIN UPPER
     Dosage: UNK
     Dates: start: 20000101
  3. PREMPRO [Suspect]
     Indication: HORMONE REPLACEMENT THERAPY
     Dosage: 0.625/2.5 MG
     Route: 048
     Dates: start: 19990101, end: 20030101
  4. MEDROXYPROGESTERONE ACETATE [Suspect]
     Dosage: UNK
     Dates: start: 19960101, end: 20030601
  5. CYCRIN [Suspect]
     Indication: HORMONE REPLACEMENT THERAPY
     Dosage: 2.5 MG, UNK
     Dates: start: 19950101, end: 19990101
  6. ESTROPIPATE [Suspect]
     Indication: HORMONE REPLACEMENT THERAPY
     Dosage: 0.625 MG, UNK
     Dates: start: 19970101, end: 19990101
  7. PROVERA [Suspect]
     Indication: HORMONE REPLACEMENT THERAPY
     Dosage: 2.5 MG, UNK
     Route: 048
     Dates: start: 19970101, end: 19990101
  8. VICODIN [Concomitant]
     Indication: PAIN
     Dosage: UNK
     Dates: start: 20000101, end: 20090101
  9. ACETYLSALICYLIC ACID [Concomitant]
     Indication: MIGRAINE
     Dosage: UNK
  10. MEDROXYPROGESTERONE ACETATE [Suspect]
     Indication: HORMONE REPLACEMENT THERAPY
     Dosage: UNK
     Route: 048
     Dates: start: 19960101, end: 20030601
  11. ULTRAM [Concomitant]
     Indication: PAIN
     Dosage: UNK
     Dates: start: 19981201
  12. PAXIL [Concomitant]
     Indication: DEPRESSION
     Dosage: UNK
     Dates: start: 19981101
  13. VISTARIL [Concomitant]
     Indication: NAUSEA
     Dosage: UNK
     Dates: start: 20010801

REACTIONS (1)
  - BREAST CANCER FEMALE [None]
